FAERS Safety Report 4590478-5 (Version None)
Quarter: 2005Q1

REPORT INFORMATION
  Report Type: 
  Country: None (occurrence: None)
  Receive Date: 20050224
  Receipt Date: 20050120
  Transmission Date: 20050727
  Serious: Yes (Other)
  Sender: FDA-Public Use
  Company Number: PHBS2005BR01275

PATIENT
  Age: 32 Year
  Sex: Female

DRUGS (1)
  1. GLEEVEC [Suspect]
     Indication: CHRONIC MYELOID LEUKAEMIA
     Dosage: 400 MG/DAY
     Route: 048

REACTIONS (10)
  - EOSINOPHILIA [None]
  - ERYTHEMA NODOSUM [None]
  - NODULE [None]
  - OEDEMA [None]
  - OEDEMA PERIPHERAL [None]
  - PAIN OF SKIN [None]
  - PYREXIA [None]
  - RASH ERYTHEMATOUS [None]
  - RASH MACULAR [None]
  - SKIN LESION [None]
